FAERS Safety Report 10552038 (Version 3)
Quarter: 2018Q4

REPORT INFORMATION
  Report Type: Spontaneous
  Country: US (occurrence: US)
  Receive Date: 20141029
  Receipt Date: 20181113
  Transmission Date: 20190204
  Serious: Yes (Other)
  Sender: FDA-Public Use
  Company Number: US-BAYER-2014-158031

PATIENT
  Age: 39 Year
  Sex: Male

DRUGS (3)
  1. MAGNEVIST [Suspect]
     Active Substance: GADOPENTETATE DIMEGLUMINE
     Indication: FLUID RETENTION
  2. MAGNEVIST [Suspect]
     Active Substance: GADOPENTETATE DIMEGLUMINE
     Indication: NUCLEAR MAGNETIC RESONANCE IMAGING HEART
     Dosage: 18 CC, ONCE
     Dates: start: 20141016, end: 20141016
  3. MAGNEVIST [Suspect]
     Active Substance: GADOPENTETATE DIMEGLUMINE
     Indication: DYSPNOEA

REACTIONS (25)
  - Limb discomfort [Not Recovered/Not Resolved]
  - Muscle fatigue [Not Recovered/Not Resolved]
  - Cognitive disorder [None]
  - Pain [None]
  - Muscle tightness [None]
  - Joint stiffness [None]
  - Gadolinium deposition disease [None]
  - Dizziness [Recovered/Resolved]
  - Limb discomfort [Not Recovered/Not Resolved]
  - Incorrect dose administered [None]
  - Hemiparesis [None]
  - Headache [None]
  - Muscular weakness [Not Recovered/Not Resolved]
  - Paraesthesia [None]
  - Pruritus [None]
  - Cyanosis [None]
  - Neuropathy peripheral [None]
  - Functional gastrointestinal disorder [None]
  - Skin burning sensation [None]
  - Dry skin [None]
  - Peripheral swelling [Not Recovered/Not Resolved]
  - Pain in extremity [Not Recovered/Not Resolved]
  - Myalgia [Not Recovered/Not Resolved]
  - Feeling cold [None]
  - Mobility decreased [None]

NARRATIVE: CASE EVENT DATE: 20141016
